FAERS Safety Report 10374896 (Version 2)
Quarter: 2014Q4

REPORT INFORMATION
  Report Type: Spontaneous
  Country: IT (occurrence: IT)
  Receive Date: 20140811
  Receipt Date: 20141111
  Transmission Date: 20150528
  Serious: Yes (Death, Life-Threatening)
  Sender: FDA-Public Use
  Company Number: IT-SA-2014SA104774

PATIENT
  Age: 81 Year
  Sex: Female

DRUGS (5)
  1. CORDARONE [Concomitant]
     Active Substance: AMIODARONE HYDROCHLORIDE
     Route: 048
  2. OMEPRAZOLE. [Concomitant]
     Active Substance: OMEPRAZOLE
  3. CARDIRENE [Suspect]
     Active Substance: ASPIRIN DL-LYSINE
     Indication: CEREBRAL ISCHAEMIA
     Route: 048
     Dates: start: 20110101, end: 20130212
  4. CLEXANE [Suspect]
     Active Substance: ENOXAPARIN SODIUM
     Indication: ATRIAL FIBRILLATION
     Route: 058
     Dates: start: 20120201, end: 20130212
  5. LASIX [Concomitant]
     Active Substance: FUROSEMIDE
     Route: 048

REACTIONS (8)
  - Headache [Fatal]
  - Hemiplegia [Fatal]
  - Somnolence [Fatal]
  - Unresponsive to stimuli [Fatal]
  - Cerebral haemorrhage [Fatal]
  - Hemiparesis [Fatal]
  - Coma [Fatal]
  - Vomiting [Fatal]

NARRATIVE: CASE EVENT DATE: 20130212
